FAERS Safety Report 11886816 (Version 3)
Quarter: 2016Q1

REPORT INFORMATION
  Report Type: Report from Study
  Country: US (occurrence: US)
  Receive Date: 20160104
  Receipt Date: 20160212
  Transmission Date: 20160526
  Serious: Yes (Other)
  Sender: FDA-Public Use
  Company Number: US-ABBVIE-15K-163-1527054-00

PATIENT
  Age: 34 Year
  Sex: Female

DRUGS (2)
  1. HUMIRA [Suspect]
     Active Substance: ADALIMUMAB
     Indication: PYODERMA GANGRENOSUM
  2. HUMIRA [Suspect]
     Active Substance: ADALIMUMAB
     Indication: CROHN^S DISEASE
     Route: 058
     Dates: start: 201410

REACTIONS (12)
  - Rectal haemorrhage [Not Recovered/Not Resolved]
  - Injection site pain [Unknown]
  - Device issue [Unknown]
  - Injection site bruising [Unknown]
  - Drug ineffective [Not Recovered/Not Resolved]
  - Injection site pain [Recovered/Resolved]
  - Rash macular [Not Recovered/Not Resolved]
  - Anal fissure [Not Recovered/Not Resolved]
  - Pyoderma [Not Recovered/Not Resolved]
  - Inappropriate schedule of drug administration [Unknown]
  - Pyoderma gangrenosum [Unknown]
  - Arthralgia [Unknown]

NARRATIVE: CASE EVENT DATE: 201512
